FAERS Safety Report 17812430 (Version 1)
Quarter: 2020Q2

REPORT INFORMATION
  Report Type: Spontaneous
  Country: US (occurrence: US)
  Receive Date: 20200521
  Receipt Date: 20200521
  Transmission Date: 20200714
  Serious: Yes (Hospitalization)
  Sender: FDA-Public Use
  Company Number: US-B.I. PHARMACEUTICALS,INC./RIDGEFIELD-2020-US-024802

PATIENT
  Age: 79 Year
  Sex: Male

DRUGS (1)
  1. PRADAXA [Suspect]
     Active Substance: DABIGATRAN ETEXILATE MESYLATE
     Indication: ARRHYTHMIA
     Dosage: 150MG BID
     Route: 065
     Dates: start: 2015, end: 20200203

REACTIONS (8)
  - Sepsis [Recovered/Resolved]
  - Off label use [Unknown]
  - Thrombosis [Recovered/Resolved]
  - Drug ineffective [Unknown]
  - Wound infection [Recovered/Resolved]
  - Fall [Recovered/Resolved]
  - Cardiac failure congestive [Recovered/Resolved]
  - Limb injury [Recovered/Resolved]

NARRATIVE: CASE EVENT DATE: 2015
